FAERS Safety Report 9333346 (Version 2)
Quarter: 2013Q2

REPORT INFORMATION
  Report Type: Spontaneous
  Country: JP (occurrence: None)
  Receive Date: 20130604
  Receipt Date: 20130619
  Transmission Date: 20140414
  Serious: Yes (Hospitalization)
  Sender: FDA-Public Use
  Company Number: TPA2013A04366

PATIENT
  Age: 64 Year
  Sex: Male

DRUGS (5)
  1. TELAVIC [Concomitant]
     Indication: CHRONIC HEPATITIS C
     Dosage: 750 MG (750 MG, 1 IN 1 D), PER ORAL
     Route: 048
     Dates: start: 20120905, end: 20121127
  2. REBETOL (RIBAVIRIN) [Concomitant]
  3. NORVASC [Concomitant]
  4. PEGINTRON [Concomitant]
  5. FEBURIC [Suspect]
     Indication: HYPERURICAEMIA
     Dosage: 20 MG (20 MG, 1 IN 1 D) ORAL
     Route: 048
     Dates: start: 20120905, end: 20121204

REACTIONS (1)
  - Drug reaction with eosinophilia and systemic symptoms [None]
